FAERS Safety Report 7063048-7 (Version None)
Quarter: 2010Q4

REPORT INFORMATION
  Report Type: 
  Country: None (occurrence: None)
  Receive Date: 20101026
  Receipt Date: 20100413
  Transmission Date: 20110411
  Serious: No
  Sender: FDA-Public Use
  Company Number: US-PFIZER INC-2010047706

PATIENT
  Sex: Male
  Weight: 113 kg

DRUGS (5)
  1. LIPITOR [Suspect]
     Indication: BLOOD CHOLESTEROL INCREASED
     Dosage: 20 MG, 1X/DAY
     Dates: start: 20090101
  2. BRIMONIDINE [Concomitant]
     Indication: GLAUCOMA
     Dosage: UNK
     Route: 047
  3. LUMIGAN [Concomitant]
     Indication: GLAUCOMA
     Dosage: UNK
     Route: 047
  4. COSOPT [Concomitant]
     Indication: GLAUCOMA
     Dosage: UNK
     Route: 047
  5. VALSARTAN [Concomitant]
     Dosage: 80 MG, UNK

REACTIONS (1)
  - MYALGIA [None]
